FAERS Safety Report 7331413-6 (Version None)
Quarter: 2011Q1

REPORT INFORMATION
  Report Type: 
  Country: None (occurrence: None)
  Receive Date: 20110228
  Receipt Date: 20110228
  Transmission Date: 20110831
  Serious: Yes (Disabling)
  Sender: FDA-Public Use
  Company Number: None

PATIENT
  Age: 57 Year
  Sex: Female
  Weight: 65.318 kg

DRUGS (2)
  1. CIPROFLOXACIN [Suspect]
     Indication: URINARY TRACT INFECTION
     Dosage: 1 TAB BID BID PO
     Route: 048
     Dates: start: 20100705, end: 20100715
  2. CIPROFLOXACIN [Suspect]
     Indication: URINARY TRACT INFECTION
     Dosage: 1 TAB BID PO
     Route: 048
     Dates: start: 20100912, end: 20100919

REACTIONS (4)
  - ARTHRALGIA [None]
  - JOINT CREPITATION [None]
  - JOINT STIFFNESS [None]
  - FUNGAL INFECTION [None]
